FAERS Safety Report 9495293 (Version 4)
Quarter: 2013Q3

REPORT INFORMATION
  Report Type: Spontaneous
  Country: JP (occurrence: JP)
  Receive Date: 20130903
  Receipt Date: 20130927
  Transmission Date: 20140515
  Serious: Yes (Hospitalization, Other)
  Sender: FDA-Public Use
  Company Number: JP-ASTRAZENECA-2013SE62872

PATIENT
  Age: 24 Year
  Sex: 0

DRUGS (2)
  1. SYMBICORT TURBUHALER [Suspect]
     Indication: ASTHMA
     Dosage: 4 DF, TWO TIMES A DAY
     Route: 055
     Dates: start: 20120607
  2. PREDONINE [Concomitant]
     Dosage: 20 MG DAILY, NUMBER OF SEPARATE DOSAGES UNKNOWN
     Route: 048
     Dates: start: 20120501, end: 20120717

REACTIONS (1)
  - Tuberculosis [Recovering/Resolving]
